FAERS Safety Report 20634045 (Version 1)
Quarter: 2022Q1

REPORT INFORMATION
  Report Type: Spontaneous
  Country: JP (occurrence: JP)
  Receive Date: 20220324
  Receipt Date: 20220324
  Transmission Date: 20220423
  Serious: Yes (Other)
  Sender: FDA-Public Use
  Company Number: JP-BRISTOL-MYERS SQUIBB COMPANY-2022-010573

PATIENT
  Age: 7 Decade
  Sex: Male

DRUGS (3)
  1. REVLIMID [Suspect]
     Active Substance: LENALIDOMIDE
     Indication: Adult T-cell lymphoma/leukaemia
     Dosage: DOSE : UNAVAILABLE;     FREQ : UNAVAILABLE
     Route: 048
  2. DEXAMETHASONE [Concomitant]
     Active Substance: DEXAMETHASONE
     Indication: Adult T-cell lymphoma/leukaemia
     Route: 003
  3. BORTEZOMIB [Concomitant]
     Active Substance: BORTEZOMIB
     Indication: Adult T-cell lymphoma/leukaemia
     Route: 042

REACTIONS (1)
  - Multi-organ disorder [Not Recovered/Not Resolved]
